FAERS Safety Report 9778309 (Version 1)
Quarter: 2013Q4

REPORT INFORMATION
  Report Type: Not Available
  Country: US (occurrence: US)
  Receive Date: 20131223
  Receipt Date: 20131223
  Transmission Date: 20140711
  Serious: No
  Sender: FDA-Public Use
  Company Number: 2012SP002853

PATIENT
  Age: 77 Year
  Sex: Female

DRUGS (1)
  1. MELOXICAM [Suspect]
     Indication: PAIN
     Route: 048
     Dates: start: 20120803, end: 20120903

REACTIONS (1)
  - Drug ineffective [Unknown]
